FAERS Safety Report 15724659 (Version 1)
Quarter: 2018Q4

REPORT INFORMATION
  Report Type: Spontaneous
  Country: US (occurrence: US)
  Receive Date: 20181215
  Receipt Date: 20181215
  Transmission Date: 20190205
  Serious: Yes (Other)
  Sender: FDA-Public Use
  Company Number: US-JNJFOC-20181137284

PATIENT
  Sex: Female
  Weight: 92.99 kg

DRUGS (1)
  1. NORGESTIMATE/ETHINYL ESTRADIOL [Suspect]
     Active Substance: ETHINYL ESTRADIOL\NORGESTIMATE
     Indication: CONTRACEPTION
     Route: 065
     Dates: start: 2011, end: 2012

REACTIONS (3)
  - Malaise [Unknown]
  - Pregnancy on oral contraceptive [Unknown]
  - Exposure during pregnancy [Unknown]
